FAERS Safety Report 7967216-9 (Version None)
Quarter: 2011Q4

REPORT INFORMATION
  Report Type: 
  Country: None (occurrence: None)
  Receive Date: 20111206
  Receipt Date: 20111121
  Transmission Date: 20120403
  Serious: Yes (Other)
  Sender: FDA-Public Use
  Company Number: NSR_0037_2011

PATIENT
  Age: 61 Year
  Sex: Female

DRUGS (2)
  1. TACROLIMUS [Suspect]
     Indication: IMMUNOSUPPRESSION
     Dosage: DF
  2. VENLAFAXINE [Suspect]
     Indication: MAJOR DEPRESSION
     Dosage: 75 MG, QD, 37.5 MG QD

REACTIONS (7)
  - DEPRESSION [None]
  - CEREBRAL ATROPHY [None]
  - POST PROCEDURAL COMPLICATION [None]
  - CONDITION AGGRAVATED [None]
  - ENCEPHALOPATHY [None]
  - SEROTONIN SYNDROME [None]
  - DIARRHOEA [None]
